FAERS Safety Report 5837997-9 (Version None)
Quarter: 2008Q3

REPORT INFORMATION
  Report Type: 
  Country: None (occurrence: None)
  Receive Date: 20080808
  Receipt Date: 20080206
  Transmission Date: 20090109
  Serious: No
  Sender: FDA-Public Use
  Company Number: A0707827A

PATIENT
  Age: 36 Year
  Sex: Male

DRUGS (1)
  1. PAXIL [Suspect]
     Dosage: 40MG PER DAY
     Route: 048
     Dates: start: 19970101

REACTIONS (3)
  - DISORIENTATION [None]
  - OCULAR DISCOMFORT [None]
  - TINNITUS [None]
